FAERS Safety Report 10050170 (Version 3)
Quarter: 2016Q1

REPORT INFORMATION
  Report Type: Report from Study
  Country: US (occurrence: US)
  Receive Date: 20140401
  Receipt Date: 20160329
  Transmission Date: 20160525
  Serious: Yes (Hospitalization, Other)
  Sender: FDA-Public Use
  Company Number: US-ABBVIE-10P-163-0637793-00

PATIENT
  Age: 25 Year
  Sex: Female
  Weight: 61.29 kg

DRUGS (21)
  1. LORTAB [Concomitant]
     Active Substance: ACETAMINOPHEN\HYDROCODONE BITARTRATE
     Indication: CROHN^S DISEASE
     Route: 048
     Dates: start: 20090706, end: 20100321
  2. FOLIC ACID. [Concomitant]
     Active Substance: FOLIC ACID
     Indication: PRODUCT USED FOR UNKNOWN INDICATION
     Route: 048
     Dates: start: 20090714, end: 20090716
  3. TYLENOL [Concomitant]
     Active Substance: ACETAMINOPHEN
     Indication: PRODUCT USED FOR UNKNOWN INDICATION
     Dosage: 2 TABS 3.4 DAY
     Dates: start: 20100213, end: 20100217
  4. VALIUM [Suspect]
     Active Substance: DIAZEPAM
     Indication: ANXIETY
  5. NYSTATIN. [Concomitant]
     Active Substance: NYSTATIN
     Route: 048
     Dates: start: 20091021, end: 20091104
  6. VALIUM [Suspect]
     Active Substance: DIAZEPAM
     Indication: CROHN^S DISEASE
     Route: 048
     Dates: start: 20090706, end: 20100321
  7. CAFFEINE. [Concomitant]
     Active Substance: CAFFEINE
     Indication: PRODUCT USED FOR UNKNOWN INDICATION
     Dosage: 1 SERVINGS - DR PEPPER SODA
     Route: 048
     Dates: start: 20090706, end: 20091210
  8. FIORICET [Concomitant]
     Active Substance: ACETAMINOPHEN\BUTALBITAL\CAFFEINE
     Indication: MIGRAINE
     Route: 048
     Dates: start: 20090706, end: 20091203
  9. HUMIRA [Suspect]
     Active Substance: ADALIMUMAB
     Indication: CROHN^S DISEASE
     Route: 058
     Dates: start: 200811, end: 200902
  10. KEFLEX [Concomitant]
     Active Substance: CEPHALEXIN
     Indication: STAPHYLOCOCCAL INFECTION
     Route: 048
     Dates: start: 20090706, end: 20090828
  11. FLAGYL [Concomitant]
     Active Substance: METRONIDAZOLE\METRONIDAZOLE HYDROCHLORIDE
     Indication: STAPHYLOCOCCAL INFECTION
     Route: 048
     Dates: start: 20090706, end: 20090828
  12. NYSTATIN. [Concomitant]
     Active Substance: NYSTATIN
     Indication: FUNGAL INFECTION
     Route: 048
     Dates: start: 20090704, end: 20091020
  13. INFLUENZA [Concomitant]
     Active Substance: INFLUENZA VIRUS VACCINE
     Indication: INFLUENZA IMMUNISATION
     Dosage: 1 SHOT
     Route: 050
     Dates: start: 20091008, end: 20091008
  14. PREDNISONE. [Concomitant]
     Active Substance: PREDNISONE
     Indication: CROHN^S DISEASE
     Route: 048
  15. TYLENOL HEADACHE PLUS [Concomitant]
     Active Substance: ACETAMINOPHEN
     Indication: HEADACHE
     Dosage: 1.5 PER WEEK
     Route: 048
     Dates: start: 20090706, end: 20100228
  16. HUMIRA [Suspect]
     Active Substance: ADALIMUMAB
     Indication: PSORIASIS
     Route: 058
     Dates: start: 200902, end: 20100321
  17. PROTONIX [Concomitant]
     Active Substance: PANTOPRAZOLE SODIUM
     Indication: GASTRIC DISORDER
  18. PHENERGAN [Concomitant]
     Active Substance: PROMETHAZINE HYDROCHLORIDE
     Indication: NAUSEA
     Dates: start: 20090706, end: 20100321
  19. TYLENOL COLD DAYTIME [Concomitant]
     Indication: PRODUCT USED FOR UNKNOWN INDICATION
     Route: 048
     Dates: start: 20091115, end: 20091125
  20. PRENATAL VITAMINS [Concomitant]
     Active Substance: VITAMINS
     Indication: PRODUCT USED FOR UNKNOWN INDICATION
     Route: 048
     Dates: start: 20090706, end: 20100321
  21. BACTRIM DS [Concomitant]
     Active Substance: SULFAMETHOXAZOLE\TRIMETHOPRIM
     Indication: STAPHYLOCOCCAL INFECTION
     Route: 048
     Dates: start: 20090706, end: 20090828

REACTIONS (18)
  - Fistula [Recovering/Resolving]
  - Premature labour [Recovered/Resolved]
  - Gastrointestinal infection [Unknown]
  - Road traffic accident [Unknown]
  - Cough [Recovered/Resolved]
  - Staphylococcal infection [Unknown]
  - Fall [Unknown]
  - Premature separation of placenta [Recovered/Resolved]
  - Road traffic accident [Unknown]
  - Hyperthermia [Recovered/Resolved]
  - Pyrexia [Unknown]
  - Respiratory tract infection [Recovered/Resolved]
  - Respiratory tract infection [Unknown]
  - Placenta praevia [Recovered/Resolved]
  - Nasopharyngitis [Unknown]
  - Premature labour [Recovered/Resolved]
  - Palpitations [Recovered/Resolved]
  - Malaise [Recovered/Resolved]

NARRATIVE: CASE EVENT DATE: 200908
